FAERS Safety Report 8874567 (Version 2)
Quarter: 2012Q4

REPORT INFORMATION
  Report Type: 
  Country: DE (occurrence: DE)
  Receive Date: 20121030
  Receipt Date: 20121109
  Transmission Date: 20130627
  Serious: Yes (Hospitalization)
  Sender: FDA-Public Use
  Company Number: DE-B.I. PHARMACEUTICALS,INC./RIDGEFIELD-2012-DE-02518DE

PATIENT
  Age: 71 Year
  Sex: Male

DRUGS (2)
  1. PRADAXA [Suspect]
     Indication: ATRIAL FIBRILLATION
  2. AMIODARON [Suspect]
     Dates: start: 20111228

REACTIONS (4)
  - Renal failure acute [Unknown]
  - Syncope [Unknown]
  - Loss of consciousness [Unknown]
  - Dehydration [Unknown]
